FAERS Safety Report 12464671 (Version 4)
Quarter: 2017Q1

REPORT INFORMATION
  Report Type: Spontaneous
  Country: US (occurrence: US)
  Receive Date: 20160614
  Receipt Date: 20170227
  Transmission Date: 20170428
  Serious: No
  Sender: FDA-Public Use
  Company Number: US-ACTELION-A-NJ2015-121779

PATIENT
  Age: 51 Year
  Sex: Female
  Weight: 72.56 kg

DRUGS (3)
  1. VELETRI [Suspect]
     Active Substance: EPOPROSTENOL
     Indication: PULMONARY ARTERIAL HYPERTENSION
     Dosage: 24 NG/KG, PER MIN
     Route: 042
     Dates: start: 20130529
  2. SILDENAFIL. [Concomitant]
     Active Substance: SILDENAFIL
     Dosage: UNK
     Dates: end: 201512
  3. WARFARIN [Concomitant]
     Active Substance: WARFARIN

REACTIONS (13)
  - Pain in jaw [Unknown]
  - Paraesthesia oral [Unknown]
  - Muscular weakness [Unknown]
  - Dyspnoea exertional [Unknown]
  - Palpitations [Unknown]
  - Nasopharyngitis [Unknown]
  - Vision blurred [Recovered/Resolved]
  - Headache [Unknown]
  - Hypoaesthesia [Unknown]
  - Paraesthesia [Recovered/Resolved]
  - Oropharyngeal pain [Unknown]
  - Muscle spasms [Unknown]
  - Productive cough [Unknown]
